FAERS Safety Report 21527782 (Version 12)
Quarter: 2025Q1

REPORT INFORMATION
  Report Type: Spontaneous
  Country: GB (occurrence: GB)
  Receive Date: 20221031
  Receipt Date: 20250324
  Transmission Date: 20250409
  Serious: Yes (Death, Hospitalization, Other)
  Sender: SANOFI AVENTIS
  Company Number: GB-MYLANLABS-2019M1117808

PATIENT
  Age: 59 Year
  Sex: Male
  Weight: 62 kg

DRUGS (381)
  1. CHLORPROMAZINE [Suspect]
     Active Substance: CHLORPROMAZINE
     Indication: Schizophrenia
  2. CHLORPROMAZINE [Suspect]
     Active Substance: CHLORPROMAZINE
     Indication: Schizophrenia
  3. CHLORPROMAZINE [Suspect]
     Active Substance: CHLORPROMAZINE
     Indication: Schizophrenia
  4. CHLORPROMAZINE [Suspect]
     Active Substance: CHLORPROMAZINE
  5. CHLORPROMAZINE [Suspect]
     Active Substance: CHLORPROMAZINE
  6. CHLORPROMAZINE [Suspect]
     Active Substance: CHLORPROMAZINE
  7. CHLORPROMAZINE [Suspect]
     Active Substance: CHLORPROMAZINE
  8. CHLORPROMAZINE [Suspect]
     Active Substance: CHLORPROMAZINE
  9. CHLORPROMAZINE [Suspect]
     Active Substance: CHLORPROMAZINE
  10. CHLORPROMAZINE [Suspect]
     Active Substance: CHLORPROMAZINE
  11. CHLORPROMAZINE [Suspect]
     Active Substance: CHLORPROMAZINE
  12. CHLORPROMAZINE [Suspect]
     Active Substance: CHLORPROMAZINE
  13. CHLORPROMAZINE [Suspect]
     Active Substance: CHLORPROMAZINE
  14. CHLORPROMAZINE [Suspect]
     Active Substance: CHLORPROMAZINE
  15. CHLORPROMAZINE [Suspect]
     Active Substance: CHLORPROMAZINE
     Route: 048
  16. CHLORPROMAZINE [Suspect]
     Active Substance: CHLORPROMAZINE
     Route: 048
  17. CHLORPROMAZINE [Suspect]
     Active Substance: CHLORPROMAZINE
     Route: 048
  18. CHLORPROMAZINE [Suspect]
     Active Substance: CHLORPROMAZINE
     Route: 048
  19. CHLORPROMAZINE [Suspect]
     Active Substance: CHLORPROMAZINE
     Route: 048
  20. CHLORPROMAZINE [Suspect]
     Active Substance: CHLORPROMAZINE
     Route: 048
  21. CHLORPROMAZINE [Suspect]
     Active Substance: CHLORPROMAZINE
     Route: 048
  22. CHLORPROMAZINE [Suspect]
     Active Substance: CHLORPROMAZINE
  23. CHLORPROMAZINE [Suspect]
     Active Substance: CHLORPROMAZINE
  24. CHLORPROMAZINE [Suspect]
     Active Substance: CHLORPROMAZINE
  25. CHLORPROMAZINE [Suspect]
     Active Substance: CHLORPROMAZINE
  26. CHLORPROMAZINE [Suspect]
     Active Substance: CHLORPROMAZINE
  27. CHLORPROMAZINE [Suspect]
     Active Substance: CHLORPROMAZINE
  28. CHLORPROMAZINE [Suspect]
     Active Substance: CHLORPROMAZINE
  29. CHLORPROMAZINE [Suspect]
     Active Substance: CHLORPROMAZINE
  30. CHLORPROMAZINE [Suspect]
     Active Substance: CHLORPROMAZINE
  31. CHLORPROMAZINE [Suspect]
     Active Substance: CHLORPROMAZINE
  32. CHLORPROMAZINE [Suspect]
     Active Substance: CHLORPROMAZINE
  33. CHLORPROMAZINE [Suspect]
     Active Substance: CHLORPROMAZINE
  34. CHLORPROMAZINE [Suspect]
     Active Substance: CHLORPROMAZINE
  35. CHLORPROMAZINE [Suspect]
     Active Substance: CHLORPROMAZINE
  36. ARIPIPRAZOLE [Suspect]
     Active Substance: ARIPIPRAZOLE
     Indication: Schizophrenia
     Route: 048
  37. CLOZAPINE [Suspect]
     Active Substance: CLOZAPINE
     Indication: Schizophrenia
     Route: 048
     Dates: start: 20100823
  38. CLOZAPINE [Suspect]
     Active Substance: CLOZAPINE
     Indication: Schizophrenia
     Dosage: 245 MG, QD(AM)
     Route: 065
     Dates: start: 2011
  39. CLOZAPINE [Suspect]
     Active Substance: CLOZAPINE
     Route: 048
     Dates: start: 20100823
  40. CLOZAPINE [Suspect]
     Active Substance: CLOZAPINE
     Dosage: 100 MG, QD (AM)
     Route: 065
     Dates: start: 2011
  41. CLOZAPINE [Suspect]
     Active Substance: CLOZAPINE
     Dosage: 1 DF, QD
     Route: 065
     Dates: start: 2011
  42. CLOZAPINE [Suspect]
     Active Substance: CLOZAPINE
     Dosage: 200 MG, BID
     Route: 048
     Dates: start: 20191209, end: 20191223
  43. CLOZAPINE [Suspect]
     Active Substance: CLOZAPINE
     Dosage: 50 MG, QD (MIDDAY)
     Route: 048
     Dates: start: 20200521
  44. CLOZAPINE [Suspect]
     Active Substance: CLOZAPINE
     Dosage: 400 MG, BID
     Route: 065
  45. CLOZAPINE [Suspect]
     Active Substance: CLOZAPINE
     Dosage: 275 MG, QD
     Route: 048
     Dates: start: 20200521, end: 2020
  46. CLOZAPINE [Suspect]
     Active Substance: CLOZAPINE
     Dosage: UNK UNK, QD
     Route: 048
     Dates: start: 20191209, end: 20191223
  47. CLOZAPINE [Suspect]
     Active Substance: CLOZAPINE
     Route: 048
     Dates: start: 20200521, end: 2021
  48. CLOZAPINE [Suspect]
     Active Substance: CLOZAPINE
     Dosage: 400 MG, QD
     Route: 048
     Dates: start: 20191209, end: 20191223
  49. CLOZAPINE [Suspect]
     Active Substance: CLOZAPINE
     Route: 048
     Dates: start: 20200521, end: 2020
  50. CLOZAPINE [Suspect]
     Active Substance: CLOZAPINE
     Route: 048
     Dates: start: 20201207
  51. CLOZAPINE [Suspect]
     Active Substance: CLOZAPINE
     Route: 048
     Dates: start: 20201223, end: 20201223
  52. CLOZAPINE [Suspect]
     Active Substance: CLOZAPINE
     Dosage: 400 MG QD
     Route: 065
     Dates: start: 20201207
  53. CLOZAPINE [Suspect]
     Active Substance: CLOZAPINE
     Route: 048
     Dates: start: 20191209, end: 20191223
  54. CLOZAPINE [Suspect]
     Active Substance: CLOZAPINE
     Route: 048
     Dates: start: 20191223, end: 20191223
  55. CLOZAPINE [Suspect]
     Active Substance: CLOZAPINE
     Route: 048
     Dates: start: 20201209, end: 20201223
  56. CLOZAPINE [Suspect]
     Active Substance: CLOZAPINE
     Route: 048
     Dates: start: 20200521
  57. CLOZAPINE [Suspect]
     Active Substance: CLOZAPINE
     Dosage: 800 MG, QD
     Route: 065
     Dates: start: 20201207
  58. CLOZAPINE [Suspect]
     Active Substance: CLOZAPINE
     Dosage: 275 MG, QD
     Route: 048
     Dates: start: 20191209, end: 20191223
  59. CLOZAPINE [Suspect]
     Active Substance: CLOZAPINE
     Dosage: 50 MG, QD
     Route: 065
     Dates: start: 20211209
  60. CLOZAPINE [Suspect]
     Active Substance: CLOZAPINE
     Dosage: 400 MG, QD
     Route: 048
     Dates: start: 20211223
  61. CLOZAPINE [Suspect]
     Active Substance: CLOZAPINE
     Dosage: 400 MG, QD
     Route: 048
     Dates: start: 20201207
  62. CLOZAPINE [Suspect]
     Active Substance: CLOZAPINE
     Dosage: 275 MG, QD
     Route: 065
  63. CLOZAPINE [Suspect]
     Active Substance: CLOZAPINE
     Route: 048
     Dates: start: 20191209, end: 20191223
  64. CLOZAPINE [Suspect]
     Active Substance: CLOZAPINE
     Dates: start: 2011
  65. CLOZAPINE [Suspect]
     Active Substance: CLOZAPINE
     Route: 048
     Dates: start: 20191207
  66. CLOZAPINE [Suspect]
     Active Substance: CLOZAPINE
     Dosage: 245 MG, QD
     Route: 048
     Dates: start: 20191223, end: 20191223
  67. CLOZAPINE [Suspect]
     Active Substance: CLOZAPINE
     Route: 048
     Dates: start: 20200521
  68. CLOZAPINE [Suspect]
     Active Substance: CLOZAPINE
     Dosage: 275 MG, BID
     Route: 048
     Dates: start: 20201207
  69. CLOZAPINE [Suspect]
     Active Substance: CLOZAPINE
     Dosage: 6000 MG, QD
     Route: 048
     Dates: start: 20201223, end: 20201223
  70. CLOZAPINE [Suspect]
     Active Substance: CLOZAPINE
     Dosage: 300 MG, QD (PM)
  71. CLOZAPINE [Suspect]
     Active Substance: CLOZAPINE
  72. CLOZAPINE [Suspect]
     Active Substance: CLOZAPINE
     Dosage: 300 MG, QD (PM)
  73. CLOZAPINE [Suspect]
     Active Substance: CLOZAPINE
     Dosage: 50 MG, QD, MIDDAY
  74. CLOZAPINE [Suspect]
     Active Substance: CLOZAPINE
     Dosage: 275 MG, QD
     Route: 048
     Dates: start: 20200521, end: 2020
  75. CLOZAPINE [Suspect]
     Active Substance: CLOZAPINE
     Dates: start: 20191209, end: 20191223
  76. CLOZAPINE [Suspect]
     Active Substance: CLOZAPINE
     Dosage: 275 MG, QD
     Route: 048
     Dates: start: 20200521
  77. CLOZAPINE [Suspect]
     Active Substance: CLOZAPINE
     Dosage: 245 MG, QD (AM)
     Dates: start: 2011
  78. CLOZAPINE [Suspect]
     Active Substance: CLOZAPINE
     Dosage: 100 MG, QD (AM)
  79. CLOZAPINE [Suspect]
     Active Substance: CLOZAPINE
     Dosage: 275 MG, QD (PM)
  80. CLOZAPINE [Suspect]
     Active Substance: CLOZAPINE
     Dosage: UNK
     Route: 048
     Dates: start: 20200521, end: 2020
  81. CLOZAPINE [Suspect]
     Active Substance: CLOZAPINE
     Dates: start: 20191207, end: 20191223
  82. CLOZAPINE [Suspect]
     Active Substance: CLOZAPINE
     Dosage: 1 DOSAGE FORM, QD (PM)
     Dates: start: 2011
  83. CLOZAPINE [Suspect]
     Active Substance: CLOZAPINE
     Dates: start: 20100823, end: 20100823
  84. CLOZAPINE [Suspect]
     Active Substance: CLOZAPINE
     Dosage: 275 MG, QD (PM)
     Dates: start: 20200521
  85. CLOZAPINE [Suspect]
     Active Substance: CLOZAPINE
     Dosage: 100 MG, QD
     Dates: start: 20200521
  86. CLOZAPINE [Suspect]
     Active Substance: CLOZAPINE
  87. CLOZAPINE [Suspect]
     Active Substance: CLOZAPINE
     Dosage: 50 MG, QD (MIDDAY)
  88. CLOZAPINE [Suspect]
     Active Substance: CLOZAPINE
     Dates: start: 20201207
  89. CLOZAPINE [Suspect]
     Active Substance: CLOZAPINE
     Route: 048
     Dates: start: 20200521, end: 2021
  90. CLOZAPINE [Suspect]
     Active Substance: CLOZAPINE
  91. CLOZAPINE [Suspect]
     Active Substance: CLOZAPINE
     Dates: end: 20191223
  92. CLOZAPINE [Suspect]
     Active Substance: CLOZAPINE
     Dosage: 400.000MG QD
  93. CLOZAPINE [Suspect]
     Active Substance: CLOZAPINE
     Dosage: 400.000MG QD
     Dates: end: 20191223
  94. CLOZAPINE [Suspect]
     Active Substance: CLOZAPINE
     Dosage: 50.000MG QD
     Dates: start: 20191223
  95. CLOZAPINE [Suspect]
     Active Substance: CLOZAPINE
     Dosage: 400.000MG QD
     Dates: start: 20200521
  96. CLOZAPINE [Suspect]
     Active Substance: CLOZAPINE
     Dosage: 200.000MG QD
  97. CLOZAPINE [Suspect]
     Active Substance: CLOZAPINE
     Dates: start: 20191223
  98. CLOZAPINE [Suspect]
     Active Substance: CLOZAPINE
     Dosage: 275.000MG QD
     Dates: start: 20200521, end: 20200521
  99. CLOZAPINE [Suspect]
     Active Substance: CLOZAPINE
     Dates: start: 20201209
  100. CLOZAPINE [Suspect]
     Active Substance: CLOZAPINE
     Dates: start: 20191207, end: 20191223
  101. CLOZAPINE [Suspect]
     Active Substance: CLOZAPINE
     Dates: end: 20191223
  102. CLOZAPINE [Suspect]
     Active Substance: CLOZAPINE
     Dosage: 400.000MG QD
  103. CLOZAPINE [Suspect]
     Active Substance: CLOZAPINE
     Dosage: 400.000MG QD
     Dates: end: 20191223
  104. CLOZAPINE [Suspect]
     Active Substance: CLOZAPINE
     Dosage: 275.000MG QD
     Dates: start: 20200521, end: 20200521
  105. CLOZAPINE [Suspect]
     Active Substance: CLOZAPINE
     Dates: start: 20201209
  106. CLOZAPINE [Suspect]
     Active Substance: CLOZAPINE
     Dosage: 400.000MG QD
     Dates: start: 20200521
  107. CLOZAPINE [Suspect]
     Active Substance: CLOZAPINE
     Dosage: 200.000MG QD
  108. CLOZAPINE [Suspect]
     Active Substance: CLOZAPINE
  109. CLOZAPINE [Suspect]
     Active Substance: CLOZAPINE
     Dates: start: 20191207, end: 20191223
  110. CLOZAPINE [Suspect]
     Active Substance: CLOZAPINE
     Dates: start: 20191223
  111. CLOZAPINE [Suspect]
     Active Substance: CLOZAPINE
     Dosage: 50.000MG QD
     Dates: start: 20191223
  112. CLOZAPINE [Suspect]
     Active Substance: CLOZAPINE
     Dosage: 600 MG, QD (AM)
     Route: 048
     Dates: start: 2011
  113. CLOZAPINE [Suspect]
     Active Substance: CLOZAPINE
     Dosage: 300 MG, QD (PM)
     Route: 048
  114. CLOZAPINE [Suspect]
     Active Substance: CLOZAPINE
     Dosage: 200 MG, QD
     Route: 048
     Dates: end: 20191223
  115. CLOZAPINE [Suspect]
     Active Substance: CLOZAPINE
     Dosage: 100 MG, QD
     Route: 048
     Dates: end: 20191223
  116. CLOZAPINE [Suspect]
     Active Substance: CLOZAPINE
     Dosage: 245 MG, QD
     Route: 048
     Dates: start: 20191209, end: 20191223
  117. CLOZAPINE [Suspect]
     Active Substance: CLOZAPINE
     Dosage: UNK
     Route: 048
     Dates: end: 20220719
  118. CLOZAPINE [Suspect]
     Active Substance: CLOZAPINE
     Dosage: 400 MG, QD 200 MG, BID
     Route: 048
     Dates: start: 20191209, end: 20191223
  119. CLOZAPINE [Suspect]
     Active Substance: CLOZAPINE
     Dosage: 245 MG
     Route: 048
     Dates: start: 20100823, end: 20200823
  120. CLOZAPINE [Suspect]
     Active Substance: CLOZAPINE
     Dosage: 800 MG, QD
     Route: 048
     Dates: start: 20201207
  121. CLOZAPINE [Suspect]
     Active Substance: CLOZAPINE
     Dosage: 200 MG, BID
     Route: 048
     Dates: start: 20191209, end: 20191223
  122. CLOZAPINE [Suspect]
     Active Substance: CLOZAPINE
     Dosage: 200 MG, BID
     Route: 048
     Dates: start: 20191209, end: 20191223
  123. CLOZAPINE [Suspect]
     Active Substance: CLOZAPINE
     Dosage: 1 DOSAGE FORM, QD
     Route: 048
  124. CLOZAPINE [Suspect]
     Active Substance: CLOZAPINE
     Dosage: 6000 MG
     Route: 048
     Dates: start: 20200521, end: 2021
  125. CLOZAPINE [Suspect]
     Active Substance: CLOZAPINE
     Dosage: 6000 MG
     Route: 048
     Dates: start: 20191209, end: 20191223
  126. CLOZAPINE [Suspect]
     Active Substance: CLOZAPINE
     Dosage: 400 MG, QD
     Route: 048
     Dates: start: 20191223, end: 20191223
  127. CLOZAPINE [Suspect]
     Active Substance: CLOZAPINE
     Dosage: UNK
     Route: 048
     Dates: start: 20100823, end: 20100823
  128. CLOZAPINE [Suspect]
     Active Substance: CLOZAPINE
     Dosage: 6000 MG
     Route: 048
     Dates: start: 20200521
  129. CLOZAPINE [Suspect]
     Active Substance: CLOZAPINE
     Dosage: 400 MG, QD (200 MG, BID)
     Route: 048
  130. CLOZAPINE [Suspect]
     Active Substance: CLOZAPINE
     Dosage: 245 MG
     Route: 048
     Dates: start: 20191207, end: 20191223
  131. CLOZAPINE [Suspect]
     Active Substance: CLOZAPINE
     Dosage: UNK
     Route: 048
     Dates: start: 20200521, end: 2021
  132. CLOZAPINE [Suspect]
     Active Substance: CLOZAPINE
     Dosage: 400 MG, QD
     Route: 048
     Dates: start: 20201207
  133. CLOZAPINE [Suspect]
     Active Substance: CLOZAPINE
     Dosage: 245 MG
     Route: 048
     Dates: start: 20200521, end: 2021
  134. CLOZAPINE [Suspect]
     Active Substance: CLOZAPINE
     Dosage: 400 MG, QD
     Route: 048
     Dates: start: 20191223, end: 20191223
  135. CLOZAPINE [Suspect]
     Active Substance: CLOZAPINE
     Dosage: UNK
     Route: 048
     Dates: start: 20100823, end: 20100823
  136. CLOZAPINE [Suspect]
     Active Substance: CLOZAPINE
     Dosage: 50 MG, QD
     Route: 048
     Dates: start: 20191209, end: 20191223
  137. CLOZAPINE [Suspect]
     Active Substance: CLOZAPINE
     Dosage: 300 MG, QD (PM)
     Route: 048
     Dates: start: 20100823
  138. CLOZAPINE [Suspect]
     Active Substance: CLOZAPINE
     Dosage: 245 MG, QD
     Route: 048
     Dates: start: 20200521
  139. CLOZAPINE [Suspect]
     Active Substance: CLOZAPINE
     Dosage: UNK
     Route: 048
     Dates: start: 20100823, end: 20100823
  140. CLOZAPINE [Suspect]
     Active Substance: CLOZAPINE
     Dosage: 800 MG, QD
     Route: 048
     Dates: start: 20201207
  141. CLOZAPINE [Suspect]
     Active Substance: CLOZAPINE
     Dosage: 400 MG, QD
     Route: 048
     Dates: start: 20100823, end: 20100823
  142. CLOZAPINE [Suspect]
     Active Substance: CLOZAPINE
     Dosage: 50 MG, QD
     Route: 048
     Dates: start: 20191209, end: 20191223
  143. CLOZAPINE [Suspect]
     Active Substance: CLOZAPINE
     Dosage: 400.000MG QD
     Route: 048
     Dates: start: 2011
  144. CLOZAPINE [Suspect]
     Active Substance: CLOZAPINE
     Dosage: 100.000MG QD
     Route: 048
     Dates: start: 2011
  145. CLOZAPINE [Suspect]
     Active Substance: CLOZAPINE
     Route: 048
     Dates: start: 20200207
  146. CLOZAPINE [Suspect]
     Active Substance: CLOZAPINE
     Dosage: 200.000MG QD
     Route: 048
  147. CLOZAPINE [Suspect]
     Active Substance: CLOZAPINE
     Dosage: UNK
     Route: 048
  148. CLOZAPINE [Suspect]
     Active Substance: CLOZAPINE
     Dosage: 275 MG, QD, PM
     Route: 048
  149. CLOZAPINE [Suspect]
     Active Substance: CLOZAPINE
     Dosage: 600.000MG QD
     Route: 048
     Dates: start: 20191207, end: 20191223
  150. CLOZAPINE [Suspect]
     Active Substance: CLOZAPINE
     Dosage: 245.000MG QD
     Route: 048
  151. CLOZAPINE [Suspect]
     Active Substance: CLOZAPINE
     Dosage: 275.000MG QD
     Route: 048
  152. CLOZAPINE [Suspect]
     Active Substance: CLOZAPINE
     Dosage: 400 MG, BID
     Route: 048
  153. CLOZAPINE [Suspect]
     Active Substance: CLOZAPINE
     Route: 048
     Dates: start: 20100823, end: 20100823
  154. CLOZAPINE [Suspect]
     Active Substance: CLOZAPINE
     Dosage: 400 MG, QD OFF LABEL USE
     Route: 048
  155. CLOZAPINE [Suspect]
     Active Substance: CLOZAPINE
     Dosage: 100.000MG QD
     Route: 048
     Dates: start: 20191223, end: 20191223
  156. CLOZAPINE [Suspect]
     Active Substance: CLOZAPINE
     Dosage: 245.000MG QD
     Route: 048
     Dates: start: 20190823, end: 20190823
  157. CLOZAPINE [Suspect]
     Active Substance: CLOZAPINE
     Dosage: UNK
     Route: 048
     Dates: end: 20200521
  158. CLOZAPINE [Suspect]
     Active Substance: CLOZAPINE
     Dosage: 800.000MG QD
     Route: 048
  159. CLOZAPINE [Suspect]
     Active Substance: CLOZAPINE
     Dosage: 50 MG, QD(1X/DAY (MIDDAY))
     Route: 048
     Dates: start: 20190809, end: 20190823
  160. CLOZAPINE [Suspect]
     Active Substance: CLOZAPINE
     Route: 048
     Dates: start: 20191223, end: 20191223
  161. CLOZAPINE [Suspect]
     Active Substance: CLOZAPINE
     Dosage: 245 MG, QD (AM)
     Route: 048
     Dates: start: 20191223, end: 20191223
  162. CLOZAPINE [Suspect]
     Active Substance: CLOZAPINE
     Dosage: 200 MILLIGRAM, TWO TIMES A DAY 200 MG, BID
     Route: 048
  163. CLOZAPINE [Suspect]
     Active Substance: CLOZAPINE
     Route: 048
     Dates: start: 20201223, end: 20201223
  164. CLOZAPINE [Suspect]
     Active Substance: CLOZAPINE
     Dosage: 400.000MG QD
     Route: 048
  165. CLOZAPINE [Suspect]
     Active Substance: CLOZAPINE
     Dosage: 1.000DF QD
     Route: 048
     Dates: start: 2011
  166. CLOZAPINE [Suspect]
     Active Substance: CLOZAPINE
     Dosage: 275.000MG QD
     Route: 048
     Dates: end: 20200521
  167. CLOZAPINE [Suspect]
     Active Substance: CLOZAPINE
     Dosage: 400.000MG QD
     Route: 048
     Dates: start: 20200207
  168. CLOZAPINE [Suspect]
     Active Substance: CLOZAPINE
     Dosage: 400.000MG QD
     Route: 048
     Dates: end: 20200521
  169. CLOZAPINE [Suspect]
     Active Substance: CLOZAPINE
     Dosage: QD
     Route: 048
     Dates: start: 20190823, end: 20190823
  170. CLOZAPINE [Suspect]
     Active Substance: CLOZAPINE
     Dosage: UNK
     Route: 048
  171. CLOZAPINE [Suspect]
     Active Substance: CLOZAPINE
     Dosage: 600.000MG QD
     Route: 048
     Dates: start: 2011
  172. CLOZAPINE [Suspect]
     Active Substance: CLOZAPINE
     Dosage: 400.000MG QD
  173. CLOZAPINE [Suspect]
     Active Substance: CLOZAPINE
     Dosage: 400.000MG QD
     Dates: end: 20191223
  174. CLOZAPINE [Suspect]
     Active Substance: CLOZAPINE
     Dosage: 275.000MG QD
     Dates: start: 20200521, end: 20200521
  175. CLOZAPINE [Suspect]
     Active Substance: CLOZAPINE
     Dosage: 200.000MG QD
  176. CLOZAPINE [Suspect]
     Active Substance: CLOZAPINE
  177. CLOZAPINE [Suspect]
     Active Substance: CLOZAPINE
     Dates: end: 20191223
  178. CLOZAPINE [Suspect]
     Active Substance: CLOZAPINE
     Dates: start: 20191207, end: 20191223
  179. CLOZAPINE [Suspect]
     Active Substance: CLOZAPINE
     Dates: start: 20191223
  180. CLOZAPINE [Suspect]
     Active Substance: CLOZAPINE
     Dosage: 50.000MG QD
     Dates: start: 20191223
  181. CLOZAPINE [Suspect]
     Active Substance: CLOZAPINE
     Dosage: 400.000MG QD
     Dates: start: 20200521
  182. CLOZAPINE [Suspect]
     Active Substance: CLOZAPINE
     Dates: start: 20201209
  183. LITHIUM [Suspect]
     Active Substance: LITHIUM
     Indication: Schizophrenia
     Route: 048
  184. LITHIUM [Suspect]
     Active Substance: LITHIUM
     Route: 048
  185. LITHIUM [Suspect]
     Active Substance: LITHIUM
     Dosage: 6 MG, QD
     Route: 048
  186. LITHIUM [Suspect]
     Active Substance: LITHIUM
     Route: 048
  187. LORAZEPAM [Suspect]
     Active Substance: LORAZEPAM
     Indication: Schizophrenia
     Route: 048
  188. LORAZEPAM [Suspect]
     Active Substance: LORAZEPAM
     Indication: Schizophrenia
     Route: 048
  189. LORAZEPAM [Suspect]
     Active Substance: LORAZEPAM
     Indication: Schizophrenia
     Route: 048
  190. LORAZEPAM [Suspect]
     Active Substance: LORAZEPAM
  191. LORAZEPAM [Suspect]
     Active Substance: LORAZEPAM
  192. LORAZEPAM [Suspect]
     Active Substance: LORAZEPAM
     Route: 048
  193. LORAZEPAM [Suspect]
     Active Substance: LORAZEPAM
     Route: 048
  194. LORAZEPAM [Suspect]
     Active Substance: LORAZEPAM
     Route: 048
  195. LORAZEPAM [Suspect]
     Active Substance: LORAZEPAM
     Route: 048
  196. LORAZEPAM [Suspect]
     Active Substance: LORAZEPAM
     Route: 048
  197. LORAZEPAM [Suspect]
     Active Substance: LORAZEPAM
     Route: 048
  198. LORAZEPAM [Suspect]
     Active Substance: LORAZEPAM
     Route: 048
  199. LORAZEPAM [Suspect]
     Active Substance: LORAZEPAM
     Route: 048
  200. LORAZEPAM [Suspect]
     Active Substance: LORAZEPAM
  201. OLANZAPINE [Suspect]
     Active Substance: OLANZAPINE
     Indication: Schizophrenia
     Route: 065
     Dates: start: 20040217
  202. OLANZAPINE [Suspect]
     Active Substance: OLANZAPINE
     Indication: Schizophrenia
     Route: 048
     Dates: start: 20060704
  203. OLANZAPINE [Suspect]
     Active Substance: OLANZAPINE
     Route: 065
  204. OLANZAPINE [Suspect]
     Active Substance: OLANZAPINE
     Route: 048
     Dates: start: 20080823
  205. OLANZAPINE [Suspect]
     Active Substance: OLANZAPINE
  206. OLANZAPINE [Suspect]
     Active Substance: OLANZAPINE
  207. OLANZAPINE [Suspect]
     Active Substance: OLANZAPINE
     Dates: start: 20040217
  208. OLANZAPINE [Suspect]
     Active Substance: OLANZAPINE
  209. OLANZAPINE [Suspect]
     Active Substance: OLANZAPINE
     Dosage: 2.5 MG, QD
     Dates: start: 20080823
  210. OLANZAPINE [Suspect]
     Active Substance: OLANZAPINE
  211. OLANZAPINE [Suspect]
     Active Substance: OLANZAPINE
  212. OLANZAPINE [Suspect]
     Active Substance: OLANZAPINE
     Dates: start: 20060704
  213. OLANZAPINE [Suspect]
     Active Substance: OLANZAPINE
     Dosage: 10.000MG QD
  214. OLANZAPINE [Suspect]
     Active Substance: OLANZAPINE
  215. OLANZAPINE [Suspect]
     Active Substance: OLANZAPINE
  216. OLANZAPINE [Suspect]
     Active Substance: OLANZAPINE
  217. OLANZAPINE [Suspect]
     Active Substance: OLANZAPINE
  218. OLANZAPINE [Suspect]
     Active Substance: OLANZAPINE
  219. OLANZAPINE [Suspect]
     Active Substance: OLANZAPINE
  220. OLANZAPINE [Suspect]
     Active Substance: OLANZAPINE
  221. OLANZAPINE [Suspect]
     Active Substance: OLANZAPINE
  222. OLANZAPINE [Suspect]
     Active Substance: OLANZAPINE
     Dosage: 10.000MG QD
  223. OLANZAPINE [Suspect]
     Active Substance: OLANZAPINE
  224. OLANZAPINE [Suspect]
     Active Substance: OLANZAPINE
  225. OLANZAPINE [Suspect]
     Active Substance: OLANZAPINE
     Route: 048
  226. OLANZAPINE [Suspect]
     Active Substance: OLANZAPINE
     Route: 048
  227. OLANZAPINE [Suspect]
     Active Substance: OLANZAPINE
     Route: 048
     Dates: start: 20040217
  228. OLANZAPINE [Suspect]
     Active Substance: OLANZAPINE
     Route: 048
  229. OLANZAPINE [Suspect]
     Active Substance: OLANZAPINE
     Route: 048
  230. OLANZAPINE [Suspect]
     Active Substance: OLANZAPINE
     Dosage: 2.500MG QD
     Route: 048
     Dates: start: 20080823
  231. OLANZAPINE [Suspect]
     Active Substance: OLANZAPINE
     Route: 048
     Dates: start: 20060704
  232. OLANZAPINE [Suspect]
     Active Substance: OLANZAPINE
  233. OLANZAPINE [Suspect]
     Active Substance: OLANZAPINE
     Dosage: 10.000MG QD
  234. OLANZAPINE [Suspect]
     Active Substance: OLANZAPINE
  235. OLANZAPINE [Suspect]
     Active Substance: OLANZAPINE
  236. OLANZAPINE [Suspect]
     Active Substance: OLANZAPINE
  237. OLANZAPINE [Suspect]
     Active Substance: OLANZAPINE
  238. RISPERIDONE [Suspect]
     Active Substance: RISPERIDONE
     Indication: Schizophrenia
     Dosage: 2 MG, BID
     Route: 065
  239. RISPERIDONE [Suspect]
     Active Substance: RISPERIDONE
     Indication: Schizophrenia
     Dosage: 1 G, QD
     Route: 065
  240. RISPERIDONE [Suspect]
     Active Substance: RISPERIDONE
     Dosage: 1 GRAM, QD
     Route: 065
  241. RISPERIDONE [Suspect]
     Active Substance: RISPERIDONE
     Dosage: 1 MG, QD
     Route: 065
  242. RISPERIDONE [Suspect]
     Active Substance: RISPERIDONE
     Dosage: 4 MG, QD
     Route: 065
  243. RISPERIDONE [Suspect]
     Active Substance: RISPERIDONE
     Dosage: 4 MG, BID
     Route: 065
  244. RISPERIDONE [Suspect]
     Active Substance: RISPERIDONE
     Dosage: 1 G, QD
     Route: 065
  245. RISPERIDONE [Suspect]
     Active Substance: RISPERIDONE
     Dosage: 1 G, QD
     Route: 065
  246. RISPERIDONE [Suspect]
     Active Substance: RISPERIDONE
     Dosage: 2 MG, BID
     Route: 065
  247. RISPERIDONE [Suspect]
     Active Substance: RISPERIDONE
     Dosage: 4 MG, BID (2 MG, BID)
     Route: 065
  248. RISPERIDONE [Suspect]
     Active Substance: RISPERIDONE
     Dosage: 1 MG, QD
     Route: 065
  249. RISPERIDONE [Suspect]
     Active Substance: RISPERIDONE
     Dosage: 3 MG, BID
  250. RISPERIDONE [Suspect]
     Active Substance: RISPERIDONE
     Dosage: 2 MG, BID
  251. RISPERIDONE [Suspect]
     Active Substance: RISPERIDONE
  252. RISPERIDONE [Suspect]
     Active Substance: RISPERIDONE
     Dosage: 4 MG, QD
  253. RISPERIDONE [Suspect]
     Active Substance: RISPERIDONE
     Dosage: 1 MG, QD
  254. RISPERIDONE [Suspect]
     Active Substance: RISPERIDONE
     Dosage: 3 MG, BID
  255. RISPERIDONE [Suspect]
     Active Substance: RISPERIDONE
     Dosage: 6 MG, QD (3MG BID)
  256. RISPERIDONE [Suspect]
     Active Substance: RISPERIDONE
     Dosage: 4 MG, QD (2MG BID)
  257. RISPERIDONE [Suspect]
     Active Substance: RISPERIDONE
  258. RISPERIDONE [Suspect]
     Active Substance: RISPERIDONE
     Dosage: 1 MG, QD
  259. RISPERIDONE [Suspect]
     Active Substance: RISPERIDONE
     Dosage: 6 MG, QD
  260. RISPERIDONE [Suspect]
     Active Substance: RISPERIDONE
     Dosage: 4 MG, QD
  261. RISPERIDONE [Suspect]
     Active Substance: RISPERIDONE
     Dosage: 6.000MG QD
  262. RISPERIDONE [Suspect]
     Active Substance: RISPERIDONE
     Dosage: 4.000MG QD
  263. RISPERIDONE [Suspect]
     Active Substance: RISPERIDONE
     Dosage: 2 MILLIGRAM 2 MG, BID
  264. RISPERIDONE [Suspect]
     Active Substance: RISPERIDONE
     Dosage: 4.000MG BID
  265. RISPERIDONE [Suspect]
     Active Substance: RISPERIDONE
     Dosage: 6.000MG BID
  266. RISPERIDONE [Suspect]
     Active Substance: RISPERIDONE
  267. RISPERIDONE [Suspect]
     Active Substance: RISPERIDONE
     Dosage: 2 MG, BID
  268. RISPERIDONE [Suspect]
     Active Substance: RISPERIDONE
     Dosage: 1.000MG QD
  269. RISPERIDONE [Suspect]
     Active Substance: RISPERIDONE
     Dosage: 2.000MG QD
  270. RISPERIDONE [Suspect]
     Active Substance: RISPERIDONE
     Dosage: 1 GRAM, ONCE A DAY
  271. RISPERIDONE [Suspect]
     Active Substance: RISPERIDONE
     Dosage: 12.000MG QD
  272. RISPERIDONE [Suspect]
     Active Substance: RISPERIDONE
     Dosage: 6.000MG QD
  273. RISPERIDONE [Suspect]
     Active Substance: RISPERIDONE
     Dosage: 1.000MG BID
  274. RISPERIDONE [Suspect]
     Active Substance: RISPERIDONE
     Dosage: 4 MILLIGRAM, ONCE A DAY (4 MG, QD) 2 MILLIGRAM, BID
  275. RISPERIDONE [Suspect]
     Active Substance: RISPERIDONE
     Dosage: 3 MILLIGRAM, TWO TIMES A DAY 3 MG, Q12H 3 MG, BID
  276. RISPERIDONE [Suspect]
     Active Substance: RISPERIDONE
     Dosage: 1.000G QD
  277. RISPERIDONE [Suspect]
     Active Substance: RISPERIDONE
     Dosage: 1 MG, QD
  278. RISPERIDONE [Suspect]
     Active Substance: RISPERIDONE
     Dosage: 2.000MG QD
  279. RISPERIDONE [Suspect]
     Active Substance: RISPERIDONE
     Dosage: 12.000MG QD
  280. RISPERIDONE [Suspect]
     Active Substance: RISPERIDONE
     Dosage: 1.000G QD
  281. RISPERIDONE [Suspect]
     Active Substance: RISPERIDONE
     Dosage: 1 MG, QD
  282. RISPERIDONE [Suspect]
     Active Substance: RISPERIDONE
  283. RISPERIDONE [Suspect]
     Active Substance: RISPERIDONE
     Dosage: 2 MG, BID
  284. RISPERIDONE [Suspect]
     Active Substance: RISPERIDONE
     Dosage: 6.000MG QD
  285. RISPERIDONE [Suspect]
     Active Substance: RISPERIDONE
     Dosage: 4.000MG BID
  286. RISPERIDONE [Suspect]
     Active Substance: RISPERIDONE
     Dosage: 4.000MG QD
  287. RISPERIDONE [Suspect]
     Active Substance: RISPERIDONE
     Dosage: 6.000MG BID
  288. RISPERIDONE [Suspect]
     Active Substance: RISPERIDONE
     Dosage: 2 MILLIGRAM 2 MG, BID
  289. RISPERIDONE [Suspect]
     Active Substance: RISPERIDONE
     Dosage: 4 MILLIGRAM, ONCE A DAY (4 MG, QD) 2 MILLIGRAM, BID
  290. RISPERIDONE [Suspect]
     Active Substance: RISPERIDONE
     Dosage: 3 MILLIGRAM, TWO TIMES A DAY 3 MG, Q12H 3 MG, BID
  291. RISPERIDONE [Suspect]
     Active Substance: RISPERIDONE
     Dosage: 1.000MG QD
  292. RISPERIDONE [Suspect]
     Active Substance: RISPERIDONE
     Dosage: 1 GRAM, ONCE A DAY
  293. RISPERIDONE [Suspect]
     Active Substance: RISPERIDONE
     Dosage: 1.000MG BID
  294. RISPERIDONE [Suspect]
     Active Substance: RISPERIDONE
     Dosage: 6.000MG QD
  295. RISPERIDONE [Suspect]
     Active Substance: RISPERIDONE
     Dosage: 3 MG, Q12H
     Route: 048
  296. RISPERIDONE [Suspect]
     Active Substance: RISPERIDONE
     Dosage: 6 MG, QD
     Route: 048
  297. RISPERIDONE [Suspect]
     Active Substance: RISPERIDONE
     Dosage: 3 MG, BID
     Route: 048
  298. RISPERIDONE [Suspect]
     Active Substance: RISPERIDONE
     Dosage: 3 MG, BID
     Route: 048
  299. RISPERIDONE [Suspect]
     Active Substance: RISPERIDONE
     Dosage: 6 MG, QD
     Route: 048
  300. RISPERIDONE [Suspect]
     Active Substance: RISPERIDONE
     Dosage: 2 MILLIGRAM 2 MG, BID
  301. RISPERIDONE [Suspect]
     Active Substance: RISPERIDONE
     Dosage: 4 MILLIGRAM, ONCE A DAY (4 MG, QD) 2 MILLIGRAM, BID
  302. RISPERIDONE [Suspect]
     Active Substance: RISPERIDONE
     Dosage: 3 MILLIGRAM, TWO TIMES A DAY 3 MG, Q12H 3 MG, BID
  303. RISPERIDONE [Suspect]
     Active Substance: RISPERIDONE
     Dosage: 1.000G QD
  304. RISPERIDONE [Suspect]
     Active Substance: RISPERIDONE
     Dosage: 1.000MG QD
  305. RISPERIDONE [Suspect]
     Active Substance: RISPERIDONE
     Dosage: 2.000MG QD
  306. RISPERIDONE [Suspect]
     Active Substance: RISPERIDONE
     Dosage: 1 GRAM, ONCE A DAY
  307. RISPERIDONE [Suspect]
     Active Substance: RISPERIDONE
     Dosage: 12.000MG QD
  308. RISPERIDONE [Suspect]
     Active Substance: RISPERIDONE
     Dosage: 6.000MG QD
  309. RISPERIDONE [Suspect]
     Active Substance: RISPERIDONE
     Dosage: 1.000MG BID
  310. RISPERIDONE [Suspect]
     Active Substance: RISPERIDONE
     Dosage: 6.000MG QD
  311. RISPERIDONE [Suspect]
     Active Substance: RISPERIDONE
     Dosage: 4.000MG BID
  312. RISPERIDONE [Suspect]
     Active Substance: RISPERIDONE
     Dosage: 4.000MG QD
  313. RISPERIDONE [Suspect]
     Active Substance: RISPERIDONE
     Dosage: 6.000MG BID
  314. RISPERIDONE [Suspect]
     Active Substance: RISPERIDONE
     Dosage: 1 MG, QD
  315. RISPERIDONE [Suspect]
     Active Substance: RISPERIDONE
  316. RISPERIDONE [Suspect]
     Active Substance: RISPERIDONE
     Dosage: 2 MG, BID
  317. ZUCLOPENTHIXOL HYDROCHLORIDE [Suspect]
     Active Substance: ZUCLOPENTHIXOL HYDROCHLORIDE
     Indication: Product used for unknown indication
     Dosage: 400 MG, BIW
     Route: 065
     Dates: start: 20030204, end: 20040217
  318. ZUCLOPENTHIXOL HYDROCHLORIDE [Suspect]
     Active Substance: ZUCLOPENTHIXOL HYDROCHLORIDE
     Indication: Schizophrenia
     Dosage: 400 MG, QW
     Route: 065
     Dates: start: 20040217, end: 20040601
  319. ZUCLOPENTHIXOL HYDROCHLORIDE [Suspect]
     Active Substance: ZUCLOPENTHIXOL HYDROCHLORIDE
     Dosage: 400 MG, BIW
     Route: 065
     Dates: start: 20040601, end: 20041018
  320. ZUCLOPENTHIXOL HYDROCHLORIDE [Suspect]
     Active Substance: ZUCLOPENTHIXOL HYDROCHLORIDE
     Dosage: 400 MG, BIW
     Route: 065
     Dates: start: 20041018, end: 20041018
  321. ZUCLOPENTHIXOL HYDROCHLORIDE [Suspect]
     Active Substance: ZUCLOPENTHIXOL HYDROCHLORIDE
     Dosage: 300 MG, QW (300 MILLIGRAM I.M WEEKLY)
     Route: 030
     Dates: start: 20091009
  322. ZUCLOPENTHIXOL HYDROCHLORIDE [Suspect]
     Active Substance: ZUCLOPENTHIXOL HYDROCHLORIDE
     Route: 065
  323. ZUCLOPENTHIXOL HYDROCHLORIDE [Suspect]
     Active Substance: ZUCLOPENTHIXOL HYDROCHLORIDE
     Route: 065
     Dates: start: 20040601, end: 20041018
  324. ZUCLOPENTHIXOL HYDROCHLORIDE [Suspect]
     Active Substance: ZUCLOPENTHIXOL HYDROCHLORIDE
     Dosage: 300 MG, QW
     Route: 030
     Dates: start: 20091018
  325. ZUCLOPENTHIXOL HYDROCHLORIDE [Suspect]
     Active Substance: ZUCLOPENTHIXOL HYDROCHLORIDE
     Dosage: 300 MG, QD
     Route: 030
     Dates: start: 20091009
  326. ZUCLOPENTHIXOL HYDROCHLORIDE [Suspect]
     Active Substance: ZUCLOPENTHIXOL HYDROCHLORIDE
     Route: 065
     Dates: start: 20040217, end: 20040601
  327. ZUCLOPENTHIXOL HYDROCHLORIDE [Suspect]
     Active Substance: ZUCLOPENTHIXOL HYDROCHLORIDE
  328. ZUCLOPENTHIXOL HYDROCHLORIDE [Suspect]
     Active Substance: ZUCLOPENTHIXOL HYDROCHLORIDE
     Route: 030
  329. ZUCLOPENTHIXOL HYDROCHLORIDE [Suspect]
     Active Substance: ZUCLOPENTHIXOL HYDROCHLORIDE
  330. ZUCLOPENTHIXOL HYDROCHLORIDE [Suspect]
     Active Substance: ZUCLOPENTHIXOL HYDROCHLORIDE
     Dosage: 400 MG, QW
     Dates: start: 20030204, end: 20040217
  331. ZUCLOPENTHIXOL HYDROCHLORIDE [Suspect]
     Active Substance: ZUCLOPENTHIXOL HYDROCHLORIDE
     Dosage: 400 MG, QW
     Dates: start: 20040217, end: 20040601
  332. ZUCLOPENTHIXOL HYDROCHLORIDE [Suspect]
     Active Substance: ZUCLOPENTHIXOL HYDROCHLORIDE
     Dosage: 400 MG, BIW
     Dates: start: 20040601, end: 20041018
  333. ZUCLOPENTHIXOL HYDROCHLORIDE [Suspect]
     Active Substance: ZUCLOPENTHIXOL HYDROCHLORIDE
     Dosage: 400 MG, QW
     Dates: start: 20041018, end: 20041018
  334. ZUCLOPENTHIXOL HYDROCHLORIDE [Suspect]
     Active Substance: ZUCLOPENTHIXOL HYDROCHLORIDE
     Dosage: 400 MG, QW
     Dates: start: 20091018
  335. ZUCLOPENTHIXOL HYDROCHLORIDE [Suspect]
     Active Substance: ZUCLOPENTHIXOL HYDROCHLORIDE
  336. ZUCLOPENTHIXOL HYDROCHLORIDE [Suspect]
     Active Substance: ZUCLOPENTHIXOL HYDROCHLORIDE
  337. ZUCLOPENTHIXOL HYDROCHLORIDE [Suspect]
     Active Substance: ZUCLOPENTHIXOL HYDROCHLORIDE
     Dosage: 400 MG, BIW
     Dates: end: 20041018
  338. ZUCLOPENTHIXOL HYDROCHLORIDE [Suspect]
     Active Substance: ZUCLOPENTHIXOL HYDROCHLORIDE
     Dosage: 400 MG, QW
     Dates: end: 20040601
  339. ZUCLOPENTHIXOL HYDROCHLORIDE [Suspect]
     Active Substance: ZUCLOPENTHIXOL HYDROCHLORIDE
     Dosage: 300 MG, QD
     Route: 030
     Dates: start: 20091009
  340. ZUCLOPENTHIXOL HYDROCHLORIDE [Suspect]
     Active Substance: ZUCLOPENTHIXOL HYDROCHLORIDE
     Dates: end: 20041018
  341. ZUCLOPENTHIXOL HYDROCHLORIDE [Suspect]
     Active Substance: ZUCLOPENTHIXOL HYDROCHLORIDE
     Dosage: 300 MG, QW
     Route: 030
     Dates: start: 20091018
  342. DOCETAXEL [Suspect]
     Active Substance: DOCETAXEL
     Indication: Breast cancer metastatic
     Route: 065
     Dates: start: 20151222
  343. DOCETAXEL [Suspect]
     Active Substance: DOCETAXEL
     Dosage: 110 MG, Q3W
     Route: 042
     Dates: start: 20150930, end: 20151021
  344. DOCETAXEL [Suspect]
     Active Substance: DOCETAXEL
     Dates: start: 20151222
  345. DOCETAXEL [Suspect]
     Active Substance: DOCETAXEL
  346. DOCETAXEL [Suspect]
     Active Substance: DOCETAXEL
     Dates: start: 20151222
  347. DOCETAXEL [Suspect]
     Active Substance: DOCETAXEL
     Dates: start: 20151222
  348. DOCETAXEL [Suspect]
     Active Substance: DOCETAXEL
  349. DOCETAXEL [Suspect]
     Active Substance: DOCETAXEL
     Dosage: 110 (CUMULATIVE DOSE: 324.98) ROUTE OF ADMIN (FREE TEXT): INTRAVENOUS (NOT OTHERWISE SPECIFIED)
     Dates: start: 20150930, end: 20151021
  350. DOCETAXEL [Suspect]
     Active Substance: DOCETAXEL
     Dosage: 110 (CUMULATIVE DOSE: 324.98) ROUTE OF ADMIN (FREE TEXT): INTRAVENOUS (NOT OTHERWISE SPECIFIED)
     Dates: start: 20150930, end: 20151021
  351. DOCETAXEL [Suspect]
     Active Substance: DOCETAXEL
     Dates: start: 20151222
  352. DOCETAXEL [Suspect]
     Active Substance: DOCETAXEL
  353. DOCETAXEL [Suspect]
     Active Substance: DOCETAXEL
  354. DOCETAXEL [Suspect]
     Active Substance: DOCETAXEL
     Dates: start: 20151222
  355. DOCETAXEL [Suspect]
     Active Substance: DOCETAXEL
     Dosage: 110 (CUMULATIVE DOSE: 324.98) ROUTE OF ADMIN (FREE TEXT): INTRAVENOUS (NOT OTHERWISE SPECIFIED)
     Dates: start: 20150930, end: 20151021
  356. PACLITAXEL [Suspect]
     Active Substance: PACLITAXEL
     Indication: Breast cancer metastatic
     Dosage: 120 MG, QW
     Route: 065
     Dates: start: 20151111, end: 20151222
  357. PACLITAXEL [Suspect]
     Active Substance: PACLITAXEL
     Dosage: 120 MG, QW
     Dates: start: 20151223, end: 20151223
  358. PACLITAXEL [Suspect]
     Active Substance: PACLITAXEL
     Dosage: 150 MG, QW
     Route: 042
     Dates: start: 20151111, end: 20151222
  359. PACLITAXEL [Suspect]
     Active Substance: PACLITAXEL
     Dosage: 120 MG, QW (CUMULATIVE DOSE: 377.142)
     Route: 042
     Dates: start: 20151223, end: 20151223
  360. PACLITAXEL [Suspect]
     Active Substance: PACLITAXEL
     Dates: start: 20151111, end: 20151222
  361. PACLITAXEL [Suspect]
     Active Substance: PACLITAXEL
     Dosage: 120 MG, QW, WEEKLY (1/W)
     Dates: start: 20151111, end: 20151222
  362. PACLITAXEL [Suspect]
     Active Substance: PACLITAXEL
     Dosage: (CUMULATIVE DOSE: 377.142) ROUTE OF ADMIN (FREE TEXT): INTRAVENOUS (NOT OTHERWISE SPECIFIED)
     Dates: end: 20151223
  363. PACLITAXEL [Suspect]
     Active Substance: PACLITAXEL
     Dosage: (CUMULATIVE DOSE: 428.57 MG) ROUTE OF ADMIN (FREE TEXT): INTRAVENOUS (NOT OTHERWISE SPECIFIED)
     Dates: start: 20151111, end: 20151222
  364. PACLITAXEL [Suspect]
     Active Substance: PACLITAXEL
     Dosage: (CUMULATIVE DOSE: 428.57 MG) 120 MG, WEEKLY (1/W) ROUTE OF ADMIN (FREE TEXT): INTRAVENOUS (NOT OTHER
     Dates: start: 20151111
  365. PACLITAXEL [Suspect]
     Active Substance: PACLITAXEL
     Dosage: 120.000MG QW
     Dates: start: 20151111
  366. PACLITAXEL [Suspect]
     Active Substance: PACLITAXEL
     Dosage: (CUMULATIVE DOSE: 428.57 MG) 120 MG, WEEKLY (1/W) ROUTE OF ADMIN (FREE TEXT): INTRAVENOUS (NOT OTHER
     Dates: start: 20151111
  367. PACLITAXEL [Suspect]
     Active Substance: PACLITAXEL
     Dosage: 120.000MG QW
     Dates: start: 20151111
  368. PACLITAXEL [Suspect]
     Active Substance: PACLITAXEL
     Dosage: (CUMULATIVE DOSE: 377.142) ROUTE OF ADMIN (FREE TEXT): INTRAVENOUS (NOT OTHERWISE SPECIFIED)
     Dates: end: 20151223
  369. PACLITAXEL [Suspect]
     Active Substance: PACLITAXEL
     Dosage: (CUMULATIVE DOSE: 428.57 MG) ROUTE OF ADMIN (FREE TEXT): INTRAVENOUS (NOT OTHERWISE SPECIFIED)
     Dates: start: 20151111, end: 20151222
  370. TRASTUZUMAB [Suspect]
     Active Substance: TRASTUZUMAB
     Indication: Breast cancer metastatic
     Dosage: 1218 MG, QW(CUMULATIVE DOSE 5575.25MG)
     Route: 065
     Dates: start: 20150930
  371. TRASTUZUMAB [Suspect]
     Active Substance: TRASTUZUMAB
     Dosage: 609 MG, Q3W (CUMULATIVE DOSE: 929.208333MG)
     Route: 042
     Dates: start: 20150930
  372. TRASTUZUMAB [Suspect]
     Active Substance: TRASTUZUMAB
     Dosage: 1827 MG, QW ((CUMULATIVE DOSE: 8362.875MG)
     Route: 065
     Dates: start: 20150930
  373. TRASTUZUMAB [Suspect]
     Active Substance: TRASTUZUMAB
     Dosage: 420 MG, Q3W
     Route: 065
  374. TRASTUZUMAB [Suspect]
     Active Substance: TRASTUZUMAB
     Dosage: 1218 MG, QW
     Dates: start: 20151130
  375. TRASTUZUMAB [Suspect]
     Active Substance: TRASTUZUMAB
     Dosage: 840 MG, QW
     Route: 065
  376. TRASTUZUMAB [Suspect]
     Active Substance: TRASTUZUMAB
     Dosage: 609 MG, BIW (1799.20 MG)
     Route: 042
     Dates: start: 20150930
  377. TRASTUZUMAB [Suspect]
     Active Substance: TRASTUZUMAB
     Route: 042
     Dates: start: 20150930
  378. TRASTUZUMAB [Suspect]
     Active Substance: TRASTUZUMAB
     Dosage: 420 MG, Q3W (CUMULATIVE DOSE: 820.83 MG)
  379. TRASTUZUMAB [Suspect]
     Active Substance: TRASTUZUMAB
     Dates: start: 20151130
  380. TRASTUZUMAB [Suspect]
     Active Substance: TRASTUZUMAB
     Dates: start: 20150930
  381. TRASTUZUMAB [Suspect]
     Active Substance: TRASTUZUMAB
     Dates: start: 20150930

REACTIONS (27)
  - Hallucination, auditory [Fatal]
  - Lymphocyte count decreased [Fatal]
  - Neutropenia [Fatal]
  - Platelet count decreased [Fatal]
  - Leukopenia [Fatal]
  - Delusion of grandeur [Fatal]
  - Schizophrenia [Fatal]
  - Extrapyramidal disorder [Fatal]
  - Affective disorder [Fatal]
  - Psychotic disorder [Fatal]
  - Neutrophil count increased [Fatal]
  - SARS-CoV-2 test positive [Fatal]
  - Neoplasm progression [Fatal]
  - Seizure [Fatal]
  - Neuropathy peripheral [Fatal]
  - Cellulitis [Fatal]
  - Rhinalgia [Fatal]
  - Dyspepsia [Fatal]
  - Mucosal inflammation [Fatal]
  - Thrombocytopenia [Fatal]
  - Leukocytosis [Fatal]
  - COVID-19 [Fatal]
  - Lymphocyte count abnormal [Fatal]
  - Disease progression [Fatal]
  - Overdose [Fatal]
  - Off label use [Fatal]
  - Incorrect dose administered [Fatal]

NARRATIVE: CASE EVENT DATE: 20151111
